FAERS Safety Report 20072398 (Version 2)
Quarter: 2021Q4

REPORT INFORMATION
  Report Type: Other
  Country: US (occurrence: US)
  Receive Date: 20211116
  Receipt Date: 20211207
  Transmission Date: 20220304
  Serious: Yes (Hospitalization)
  Sender: FDA-Public Use
  Company Number: US-INTERCEPT-PM2021003211

PATIENT
  Sex: Female

DRUGS (23)
  1. OCALIVA [Suspect]
     Active Substance: OBETICHOLIC ACID
     Indication: Primary biliary cholangitis
     Dosage: 5 MILLIGRAM, QD
     Route: 048
     Dates: start: 20191226
  2. OCALIVA [Suspect]
     Active Substance: OBETICHOLIC ACID
     Dosage: 5 MILLIGRAM, QD
     Route: 048
  3. OCALIVA [Suspect]
     Active Substance: OBETICHOLIC ACID
     Dosage: 5 MILLIGRAM, QD
     Route: 048
     Dates: end: 2021
  4. ACTIGALL [Concomitant]
     Active Substance: URSODIOL
     Dosage: 500 MILLIGRAM, QD
     Route: 048
     Dates: start: 20200103
  5. ACTIGALL [Concomitant]
     Active Substance: URSODIOL
     Dosage: 750 MILLIGRAM, QD
     Route: 048
  6. TYLENOL [Concomitant]
     Active Substance: ACETAMINOPHEN
     Dosage: 300 MILLIGRAM, QD
     Route: 048
  7. ALOGLIPTIN;METFORMIN [Concomitant]
     Dosage: 1000 MILLIGRAM, BID
     Route: 048
  8. LIPITOR [Concomitant]
     Active Substance: ATORVASTATIN CALCIUM
     Dosage: 10 MILLIGRAM, QD
     Route: 048
  9. VITAMIN D3 [Concomitant]
     Active Substance: CHOLECALCIFEROL
     Dosage: 50 MICROGRAM, QD
     Route: 048
  10. LEXAPRO [Concomitant]
     Active Substance: ESCITALOPRAM OXALATE
     Dosage: 5 MILLIGRAM, QD
     Route: 048
  11. NEURONTIN [Concomitant]
     Active Substance: GABAPENTIN
     Indication: Pain
     Dosage: 100 MILLIGRAM, QD
  12. GLUCOTROL [Concomitant]
     Active Substance: GLIPIZIDE
     Dosage: 5 MILLIGRAM, BID
     Route: 048
  13. HYZAAR [Concomitant]
     Active Substance: HYDROCHLOROTHIAZIDE\LOSARTAN POTASSIUM
     Dosage: 12.5 MILLIGRAM, QD
     Route: 048
  14. ANTIVERT [Concomitant]
     Active Substance: MECLIZINE HYDROCHLORIDE
     Indication: Vertigo
     Dosage: 25 MILLIGRAM
  15. ROBAXIN [Concomitant]
     Active Substance: METHOCARBAMOL
     Dosage: 500 MILLIGRAM, BID
     Route: 048
  16. REGLAN [Concomitant]
     Active Substance: METOCLOPRAMIDE HYDROCHLORIDE
     Dosage: 10 MILLIGRAM, QD
     Route: 048
  17. ZOFRAN [Concomitant]
     Active Substance: ONDANSETRON HYDROCHLORIDE
     Dosage: 4 MILLIGRAM, EVERY 8 HOURS
     Route: 048
  18. DITROPAN [Concomitant]
     Active Substance: OXYBUTYNIN CHLORIDE
     Dosage: 5 MILLIGRAM, BID
     Route: 048
  19. JANUMET [Concomitant]
     Active Substance: METFORMIN HYDROCHLORIDE\SITAGLIPTIN PHOSPHATE
     Dosage: 1000 MILLIGRAM, BID
     Route: 048
  20. KENALOG [Concomitant]
     Active Substance: TRIAMCINOLONE ACETONIDE
     Dosage: UNK, BID
     Route: 061
  21. NASACORT [Concomitant]
     Active Substance: TRIAMCINOLONE ACETONIDE
     Dosage: 55 MICROGRAM, QD
  22. VITAMIN A [Concomitant]
     Active Substance: VITAMIN A
     Dosage: 10000 INTERNATIONAL UNIT, QD
     Route: 048
  23. THERA-M [Concomitant]
     Dosage: 400 MICROGRAM, QD
     Route: 048

REACTIONS (2)
  - Cerebrovascular accident [Unknown]
  - Therapy interrupted [Not Recovered/Not Resolved]

NARRATIVE: CASE EVENT DATE: 20210101
